FAERS Safety Report 24609024 (Version 3)
Quarter: 2024Q4

REPORT INFORMATION
  Report Type: Spontaneous
  Country: US (occurrence: US)
  Receive Date: 20241112
  Receipt Date: 20241226
  Transmission Date: 20250115
  Serious: Yes (Other)
  Sender: PFIZER
  Company Number: US-PFIZER INC-PV202400146232

PATIENT
  Age: 46 Year
  Sex: Male
  Weight: 92.517 kg

DRUGS (1)
  1. INLYTA [Suspect]
     Active Substance: AXITINIB
     Dosage: UNK
     Dates: start: 20241105, end: 202411

REACTIONS (7)
  - Dehydration [Not Recovered/Not Resolved]
  - Vomiting [Unknown]
  - Pyrexia [Unknown]
  - Headache [Recovered/Resolved]
  - Weight decreased [Unknown]
  - Decreased appetite [Unknown]
  - Fatigue [Unknown]

NARRATIVE: CASE EVENT DATE: 20241105
